FAERS Safety Report 5750087-9 (Version None)
Quarter: 2008Q2

REPORT INFORMATION
  Report Type: 
  Country: None (occurrence: None)
  Receive Date: 20080527
  Receipt Date: 20080520
  Transmission Date: 20081010
  Serious: Yes (Hospitalization)
  Sender: FDA-Public Use
  Company Number: GB-PFIZER INC-2006131236

PATIENT
  Sex: Male
  Weight: 81 kg

DRUGS (7)
  1. SU-011,248 [Suspect]
     Indication: RENAL CELL CARCINOMA
     Route: 048
  2. LANSOPRAZOLE [Concomitant]
     Route: 048
  3. PREDNISOLONE [Concomitant]
     Route: 048
  4. SENNA [Concomitant]
     Route: 048
  5. LACTULOSE [Concomitant]
     Route: 048
  6. DOCUSATE SODIUM [Concomitant]
     Route: 048
  7. DIAZEPAM [Concomitant]
     Route: 048

REACTIONS (3)
  - DIZZINESS [None]
  - LETHARGY [None]
  - VOMITING [None]
